FAERS Safety Report 24327136 (Version 1)
Quarter: 2024Q3

REPORT INFORMATION
  Report Type: Report from Study
  Country: IE (occurrence: IE)
  Receive Date: 20240917
  Receipt Date: 20240917
  Transmission Date: 20241016
  Serious: Yes (Other)
  Sender: MYLAN
  Company Number: IE-MYLANLABS-2024M1084069

PATIENT
  Age: 32 Year
  Sex: Female

DRUGS (26)
  1. CANDESARTAN [Suspect]
     Active Substance: CANDESARTAN
     Indication: Post-traumatic headache
     Dosage: UNK
     Route: 065
  2. CANDESARTAN [Suspect]
     Active Substance: CANDESARTAN
     Indication: Migraine prophylaxis
  3. PREGABALIN [Suspect]
     Active Substance: PREGABALIN
     Indication: Post-traumatic headache
     Dosage: UNK
     Route: 065
  4. PREGABALIN [Suspect]
     Active Substance: PREGABALIN
     Indication: Migraine prophylaxis
  5. MEMANTINE [Suspect]
     Active Substance: MEMANTINE
     Indication: Post-traumatic headache
     Dosage: UNK
     Route: 065
  6. MEMANTINE [Suspect]
     Active Substance: MEMANTINE
     Indication: Migraine prophylaxis
  7. PROPRANOLOL [Suspect]
     Active Substance: PROPRANOLOL HYDROCHLORIDE
     Indication: Migraine prophylaxis
     Dosage: UNK
     Route: 065
  8. PROPRANOLOL [Suspect]
     Active Substance: PROPRANOLOL HYDROCHLORIDE
     Indication: Post-traumatic headache
  9. TOPIRAMATE [Suspect]
     Active Substance: TOPIRAMATE
     Indication: Post-traumatic headache
     Dosage: UNK
     Route: 065
  10. TOPIRAMATE [Suspect]
     Active Substance: TOPIRAMATE
     Indication: Migraine prophylaxis
  11. AMITRIPTYLINE [Suspect]
     Active Substance: AMITRIPTYLINE
     Indication: Post-traumatic headache
     Dosage: UNK
     Route: 065
  12. AMITRIPTYLINE [Suspect]
     Active Substance: AMITRIPTYLINE
     Indication: Migraine prophylaxis
  13. BOTOX [Suspect]
     Active Substance: ONABOTULINUMTOXINA
     Indication: Post-traumatic headache
     Dosage: UNK
     Route: 065
  14. BOTOX [Suspect]
     Active Substance: ONABOTULINUMTOXINA
     Indication: Migraine prophylaxis
  15. DIHYDROERGOTAMINE MESYLATE [Suspect]
     Active Substance: DIHYDROERGOTAMINE MESYLATE
     Indication: Post-traumatic headache
     Dosage: UNK
     Route: 065
  16. DIHYDROERGOTAMINE MESYLATE [Suspect]
     Active Substance: DIHYDROERGOTAMINE MESYLATE
     Indication: Migraine prophylaxis
  17. INDOMETHACIN [Suspect]
     Active Substance: INDOMETHACIN
     Indication: Post-traumatic headache
     Dosage: UNK
     Route: 065
  18. INDOMETHACIN [Suspect]
     Active Substance: INDOMETHACIN
     Indication: Migraine prophylaxis
  19. KETAMINE [Suspect]
     Active Substance: KETAMINE
     Indication: Post-traumatic headache
     Dosage: UNK
     Route: 065
  20. KETAMINE [Suspect]
     Active Substance: KETAMINE
     Indication: Migraine prophylaxis
  21. LIDOCAINE [Suspect]
     Active Substance: LIDOCAINE
     Indication: Post-traumatic headache
     Dosage: UNK
     Route: 042
  22. LIDOCAINE [Suspect]
     Active Substance: LIDOCAINE
     Indication: Migraine prophylaxis
  23. NORTRIPTYLINE [Suspect]
     Active Substance: NORTRIPTYLINE
     Indication: Post-traumatic headache
     Dosage: UNK
     Route: 065
  24. NORTRIPTYLINE [Suspect]
     Active Substance: NORTRIPTYLINE
     Indication: Migraine prophylaxis
  25. PIZOTYLINE [Suspect]
     Active Substance: PIZOTYLINE
     Indication: Post-traumatic headache
     Dosage: UNK
     Route: 065
  26. PIZOTYLINE [Suspect]
     Active Substance: PIZOTYLINE
     Indication: Migraine prophylaxis

REACTIONS (2)
  - Treatment failure [Unknown]
  - Off label use [Unknown]
